FAERS Safety Report 9397284 (Version 5)
Quarter: 2014Q3

REPORT INFORMATION
  Report Type: Spontaneous
  Country: US (occurrence: None)
  Receive Date: 20130708
  Receipt Date: 20140806
  Transmission Date: 20150326
  Serious: Yes (Congenital Anomaly, Other)
  Sender: FDA-Public Use
  Company Number: AUR-APL-2013-05683

PATIENT
  Sex: Female
  Weight: 3.4 kg

DRUGS (4)
  1. RIBAVIRINE [Suspect]
     Active Substance: RIBAVIRIN
     Indication: HEPATITIS C
     Route: 064
     Dates: end: 201203
  2. PEGYLATED INTERFERON ALPHA NOS [Suspect]
     Active Substance: PEGINTERFERON ALFA-2A OR PEGINTERFERON ALFA-2B
     Indication: HEPATITIS C
     Dosage: (1 IN 1 WK), TRANSPLACENTAL
     Route: 064
     Dates: end: 201203
  3. ALBUTEROL (SALBUTAMOL) [Concomitant]
     Active Substance: ALBUTEROL
  4. PRENATAL VITAMINS (VITAMINS /90003601/) [Concomitant]

REACTIONS (7)
  - Atrial septal defect [None]
  - Congenital arterial malformation [None]
  - Protrusion tongue [None]
  - Infantile vomiting [None]
  - Jaundice neonatal [None]
  - Congenital anomaly [None]
  - Maternal drugs affecting foetus [None]
